FAERS Safety Report 10679950 (Version 1)
Quarter: 2014Q4

REPORT INFORMATION
  Report Type: Report from Study
  Country: JP (occurrence: JP)
  Receive Date: 20141229
  Receipt Date: 20141229
  Transmission Date: 20150529
  Serious: Yes (Death, Other)
  Sender: FDA-Public Use
  Company Number: JP-ABBVIE-14P-087-1326448-00

PATIENT
  Age: 29 Year
  Sex: Female
  Weight: 35.1 kg

DRUGS (3)
  1. TRANILAST [Concomitant]
     Active Substance: TRANILAST
     Indication: PRODUCT USED FOR UNKNOWN INDICATION
     Dates: start: 20130809, end: 20140221
  2. LUPRON DEPOT [Suspect]
     Active Substance: LEUPROLIDE ACETATE
     Indication: BREAST CANCER FEMALE
     Route: 058
     Dates: start: 20130906, end: 20131129
  3. TAMOXIFEN [Concomitant]
     Active Substance: TAMOXIFEN
     Indication: PRODUCT USED FOR UNKNOWN INDICATION
     Dates: end: 20140221

REACTIONS (1)
  - Breast cancer recurrent [Fatal]

NARRATIVE: CASE EVENT DATE: 20140220
